FAERS Safety Report 8401946 (Version 3)
Quarter: 2014Q2

REPORT INFORMATION
  Report Type: Spontaneous
  Country: US (occurrence: US)
  Receive Date: 20120213
  Receipt Date: 20131024
  Transmission Date: 20141212
  Serious: Yes (Other)
  Sender: FDA-Public Use
  Company Number: US-PFIZER INC-2012034603

PATIENT
  Age: 61 Year
  Sex: Female

DRUGS (1)
  1. DILANTIN [Suspect]
     Dosage: 100 MG, UNK

REACTIONS (1)
  - Stevens-Johnson syndrome [Unknown]
